FAERS Safety Report 10166276 (Version 2)
Quarter: 2014Q2

REPORT INFORMATION
  Report Type: Report from Study
  Country: CA (occurrence: CA)
  Receive Date: 20140512
  Receipt Date: 20140512
  Transmission Date: 20141212
  Serious: Yes (Other)
  Sender: FDA-Public Use
  Company Number: CA-BRISTOL-MYERS SQUIBB COMPANY-19364579

PATIENT
  Age: 60 Year
  Sex: Female

DRUGS (7)
  1. ORENCIA [Suspect]
     Indication: RHEUMATOID ARTHRITIS
     Dosage: LAST DOSE AUG2013
     Route: 042
     Dates: start: 20130508
  2. LEFLUNOMIDE [Concomitant]
     Route: 048
  3. METHOTREXATE [Concomitant]
  4. FOLIC ACID [Concomitant]
     Dosage: 5 DAYS A WEEK
  5. SPIRONOLACTONE [Concomitant]
     Route: 048
  6. WARFARIN [Concomitant]
  7. TYLENOL #2 [Concomitant]

REACTIONS (1)
  - Cardiac failure congestive [Unknown]
